FAERS Safety Report 16346926 (Version 1)
Quarter: 2019Q2

REPORT INFORMATION
  Report Type: Spontaneous
  Country: DK (occurrence: DK)
  Receive Date: 20190523
  Receipt Date: 20190523
  Transmission Date: 20190711
  Serious: Yes (Hospitalization, Other)
  Sender: FDA-Public Use
  Company Number: DK-AUROBINDO-AUR-APL-2019-026820

PATIENT

DRUGS (5)
  1. PULMICORT TURBUHALER [Interacting]
     Active Substance: BUDESONIDE
     Indication: ASTHMA
     Dosage: 800 MICROGRAM, ONCE A DAY
     Route: 055
     Dates: start: 20161123
  2. BRICANYL [Concomitant]
     Active Substance: TERBUTALINE SULFATE
     Indication: ASTHMA
     Dosage: 0.5 MILLIGRAM, AS NECESSARY
     Route: 055
     Dates: start: 20180101
  3. PRAMIPEXOLE AUROBINDO 0.088MG TABLETS [Suspect]
     Active Substance: PRAMIPEXOLE
     Indication: RESTLESS LEGS SYNDROME
     Dosage: A0.26 MILLIGRAM, ONCE A DAY
     Route: 048
     Dates: start: 201810
  4. PAMOL [Concomitant]
     Active Substance: ACETAMINOPHEN
     Indication: PAIN
     Dosage: 1000 MILLIGRAM, 2 TABLETS AS NEEDED, NO MORE THAN 4 TIMES DAILY
     Route: 048
     Dates: start: 20151215
  5. IBUMETIN [Concomitant]
     Active Substance: IBUPROFEN
     Indication: PAIN
     Dosage: UNK
     Route: 048

REACTIONS (1)
  - Pneumonia [Unknown]
